FAERS Safety Report 14128288 (Version 4)
Quarter: 2019Q1

REPORT INFORMATION
  Report Type: Report from Study
  Country: US (occurrence: US)
  Receive Date: 20171026
  Receipt Date: 20190131
  Transmission Date: 20190417
  Serious: Yes (Hospitalization)
  Sender: FDA-Public Use
  Company Number: US-SA-2017SA207017

PATIENT
  Age: 58 Year
  Sex: Female

DRUGS (2)
  1. AGALSIDASE BETA [Suspect]
     Active Substance: AGALSIDASE BETA
     Dosage: DOSE- 70.00  FREQUENCY- Q2
     Route: 041
     Dates: start: 20091028
  2. AGALSIDASE BETA [Suspect]
     Active Substance: AGALSIDASE BETA
     Indication: FABRY^S DISEASE
     Dosage: DOSE- 70.00  FREQUENCY- Q2
     Route: 041
     Dates: start: 20140408

REACTIONS (5)
  - Cardiac hypertrophy [Unknown]
  - Poor venous access [Unknown]
  - Renal disorder [Unknown]
  - Contusion [Unknown]
  - Colitis [Recovered/Resolved]

NARRATIVE: CASE EVENT DATE: 20170622
